FAERS Safety Report 17529259 (Version 1)
Quarter: 2020Q1

REPORT INFORMATION
  Report Type: Spontaneous
  Country: GB (occurrence: GB)
  Receive Date: 20200312
  Receipt Date: 20200312
  Transmission Date: 20200409
  Serious: Yes (Other)
  Sender: FDA-Public Use
  Company Number: GB-TEVA-2020-GB-1198077

PATIENT
  Age: 66 Year
  Sex: Female
  Weight: 69 kg

DRUGS (14)
  1. DOXYCYCLINE. [Concomitant]
     Active Substance: DOXYCYCLINE
     Dosage: TAKE TAKE TWO TOGETHER ON THE FIRST DAY THEN ONE DAILY
     Dates: start: 20200127, end: 20200203
  2. AMITRIPTYLINE HYDROCHLORIDE. [Concomitant]
     Active Substance: AMITRIPTYLINE HYDROCHLORIDE
     Dosage: NIGHT
     Dates: start: 20191223, end: 20200120
  3. CINNARIZINE [Concomitant]
     Active Substance: CINNARIZINE
     Dates: start: 20200127
  4. CALCICHEW D3 [Concomitant]
     Active Substance: CALCIUM\CHOLECALCIFEROL
     Dates: start: 20190410, end: 20191126
  5. PROCHLORPERAZINE. [Concomitant]
     Active Substance: PROCHLORPERAZINE
     Dates: start: 20200131
  6. FOSTAIR [Concomitant]
     Active Substance: BECLOMETHASONE\FORMOTEROL
     Dates: start: 20190808
  7. FLUOXETINE [Concomitant]
     Active Substance: FLUOXETINE HYDROCHLORIDE
     Dates: start: 20190410
  8. ATORVASTATIN [Concomitant]
     Active Substance: ATORVASTATIN
     Dates: start: 20190410
  9. AMOXICILLIN. [Suspect]
     Active Substance: AMOXICILLIN
     Dosage: 750 MILLIGRAM
     Route: 065
     Dates: start: 20200123, end: 20200130
  10. CANDESARTAN. [Concomitant]
     Active Substance: CANDESARTAN
     Dates: start: 20191105
  11. CLARITHROMYCIN. [Concomitant]
     Active Substance: CLARITHROMYCIN
     Dates: start: 20200203, end: 20200210
  12. ALENDRONIC ACID [Concomitant]
     Active Substance: ALENDRONIC ACID
     Dosage: ON THE SAME DAY EA...
     Dates: start: 20190926
  13. ACCRETE D3 [Concomitant]
     Active Substance: CALCIUM CARBONATE\CHOLECALCIFEROL
     Dates: start: 20191126
  14. CO-AMOXICLAV [Concomitant]
     Active Substance: AMOXICILLIN\CLAVULANATE POTASSIUM
     Dates: start: 20191227, end: 20200103

REACTIONS (1)
  - Malaise [Recovered/Resolved]

NARRATIVE: CASE EVENT DATE: 20200212
